FAERS Safety Report 4648738-5 (Version None)
Quarter: 2005Q2

REPORT INFORMATION
  Report Type: 
  Country: None (occurrence: None)
  Receive Date: 20050429
  Receipt Date: 20050419
  Transmission Date: 20051028
  Serious: Yes (Other)
  Sender: FDA-Public Use
  Company Number: PHEH2005US04536

PATIENT
  Age: 60 Year
  Sex: Male

DRUGS (2)
  1. PROTOPIC [Concomitant]
  2. ELIDEL [Suspect]

REACTIONS (1)
  - MYELODYSPLASTIC SYNDROME [None]
